FAERS Safety Report 4507361-3 (Version None)
Quarter: 2004Q4

REPORT INFORMATION
  Report Type: 
  Country: None (occurrence: None)
  Receive Date: 20041118
  Receipt Date: 20041108
  Transmission Date: 20050328
  Serious: Yes (Death, Other)
  Sender: FDA-Public Use
  Company Number: KII-2002-0001847

PATIENT
  Sex: Female

DRUGS (1)
  1. OXYCONTIN [Suspect]
     Indication: CANCER PAIN
     Dosage: 40 MG, ORAL
     Route: 048

REACTIONS (4)
  - CONDITION AGGRAVATED [None]
  - DYSPHAGIA [None]
  - MEDICATION ERROR [None]
  - PELVIC NEOPLASM [None]
